FAERS Safety Report 8282343-7 (Version None)
Quarter: 2012Q2

REPORT INFORMATION
  Report Type: 
  Country: None (occurrence: None)
  Receive Date: 20120413
  Receipt Date: 20120326
  Transmission Date: 20120825
  Serious: Yes (Hospitalization)
  Sender: FDA-Public Use
  Company Number: GB-EISAI INC-E2090-02049-SPO-GB

PATIENT
  Age: 61 Year
  Sex: Male
  Weight: 96 kg

DRUGS (9)
  1. LISKONUM [Concomitant]
     Dosage: 450 MG UNKNOWN
     Route: 048
     Dates: start: 20010503
  2. SIMVASTATIN [Concomitant]
     Indication: CARDIOVASCULAR EVENT PROPHYLAXIS
     Route: 048
     Dates: start: 20081110
  3. ZONISAMIDE [Suspect]
     Dosage: UNKNOWN
     Route: 048
     Dates: start: 20120111, end: 20120221
  4. PREDNISOLONE [Concomitant]
     Dates: start: 20120217
  5. AMOXICILLIN [Concomitant]
     Route: 048
     Dates: start: 20120217
  6. OMEPRAZOLE [Concomitant]
     Indication: DYSPEPSIA
     Route: 048
     Dates: start: 20031013
  7. PREGABALIN [Concomitant]
  8. ALBUTEROL [Concomitant]
     Indication: CHRONIC OBSTRUCTIVE PULMONARY DISEASE
     Route: 055
     Dates: start: 20091015
  9. TIOTROPIUM BROMIDE MONOHYDRATE [Concomitant]
     Indication: CHRONIC OBSTRUCTIVE PULMONARY DISEASE
     Route: 055
     Dates: start: 20120208

REACTIONS (5)
  - INFLUENZA LIKE ILLNESS [None]
  - PYREXIA [None]
  - WHITE BLOOD CELL COUNT DECREASED [None]
  - HYPERHIDROSIS [None]
  - CHILLS [None]
